FAERS Safety Report 8529058-5 (Version None)
Quarter: 2012Q3

REPORT INFORMATION
  Report Type: 
  Country: None (occurrence: None)
  Receive Date: 20120716
  Receipt Date: 20120716
  Transmission Date: 20120928
  Serious: Yes (Disabling, Other)
  Sender: FDA-Public Use
  Company Number: None

PATIENT
  Sex: Male
  Weight: 90.7194 kg

DRUGS (1)
  1. SUBOXONE [Suspect]
     Indication: DRUG WITHDRAWAL SYNDROME
     Dosage: 1 8 MG STRIP TWICE DAILY UNDER TONGUE
     Dates: start: 20100101

REACTIONS (6)
  - HEADACHE [None]
  - MOOD SWINGS [None]
  - ARTHRALGIA [None]
  - HYPERTENSION [None]
  - TOOTH LOSS [None]
  - FRACTURE [None]
